FAERS Safety Report 14861788 (Version 1)
Quarter: 2018Q2

REPORT INFORMATION
  Report Type: Spontaneous
  Country: US (occurrence: US)
  Receive Date: 20180508
  Receipt Date: 20180508
  Transmission Date: 20180711
  Serious: Yes (Other)
  Sender: FDA-Public Use
  Company Number: US-VIFOR (INTERNATIONAL) INC.-VIT-2017-13167

PATIENT
  Sex: Male
  Weight: 104.42 kg

DRUGS (2)
  1. VELTASSA [Suspect]
     Active Substance: PATIROMER
     Indication: HYPERKALAEMIA
     Route: 048
     Dates: start: 20171006, end: 2017
  2. VELTASSA [Suspect]
     Active Substance: PATIROMER
     Indication: RENAL DISORDER

REACTIONS (3)
  - Dyschezia [Recovered/Resolved]
  - Faeces hard [Recovered/Resolved]
  - Constipation [Recovered/Resolved]

NARRATIVE: CASE EVENT DATE: 2017
